FAERS Safety Report 5601312-6 (Version None)
Quarter: 2008Q1

REPORT INFORMATION
  Report Type: 
  Country: None (occurrence: None)
  Receive Date: 20080124
  Receipt Date: 20080122
  Transmission Date: 20080703
  Serious: Yes (Disabling)
  Sender: FDA-Public Use
  Company Number: B0504382A

PATIENT
  Age: 70 Year
  Sex: Female
  Weight: 82.6 kg

DRUGS (4)
  1. ZYBAN [Suspect]
     Indication: SMOKING CESSATION THERAPY
     Route: 048
     Dates: start: 20071224, end: 20071229
  2. EVISTA [Concomitant]
     Indication: OSTEOPOROSIS POSTMENOPAUSAL
     Route: 048
  3. ENALAPRIL MALEATE [Concomitant]
     Route: 048
  4. FRUMIL [Concomitant]
     Route: 048

REACTIONS (5)
  - CHEST DISCOMFORT [None]
  - CHRONIC OBSTRUCTIVE PULMONARY DISEASE [None]
  - DIZZINESS [None]
  - DYSPNOEA [None]
  - HYPERHIDROSIS [None]
